FAERS Safety Report 16279194 (Version 6)
Quarter: 2019Q3

REPORT INFORMATION
  Report Type: Report from Study
  Country: US (occurrence: US)
  Receive Date: 20190506
  Receipt Date: 20190925
  Transmission Date: 20191004
  Serious: Yes (Hospitalization, Other)
  Sender: FDA-Public Use
  Company Number: US-TESARO-2019-TSO00732-US

PATIENT
  Age: 69 Year
  Sex: Female

DRUGS (3)
  1. NIRAPARIB [Suspect]
     Active Substance: NIRAPARIB
     Dosage: 100 MG, QD, PM WITH FOOD
     Route: 048
  2. NIRAPARIB [Suspect]
     Active Substance: NIRAPARIB
     Dosage: 100 MG, QD, PM WITH FOOD
     Route: 048
     Dates: start: 20190130
  3. NIRAPARIB [Suspect]
     Active Substance: NIRAPARIB
     Dosage: 200 MG, QD
     Route: 048

REACTIONS (15)
  - White blood cell count decreased [Not Recovered/Not Resolved]
  - Hospitalisation [Unknown]
  - Abdominal discomfort [Unknown]
  - Dehydration [Unknown]
  - Vomiting [Unknown]
  - Stoma obstruction [Unknown]
  - Anaemia [Unknown]
  - Ulcer [Unknown]
  - Urinary tract infection [Unknown]
  - Underdose [Unknown]
  - Atrial fibrillation [Unknown]
  - Asthenia [Not Recovered/Not Resolved]
  - Malaise [Unknown]
  - Gastrointestinal obstruction [Unknown]
  - Full blood count decreased [Unknown]

NARRATIVE: CASE EVENT DATE: 20190130
